FAERS Safety Report 4679243-8 (Version None)
Quarter: 2005Q2

REPORT INFORMATION
  Report Type: 
  Country: None (occurrence: None)
  Receive Date: 20050531
  Receipt Date: 20050531
  Transmission Date: 20051028
  Serious: Yes (Hospitalization, Disabling)
  Sender: FDA-Public Use
  Company Number: None

PATIENT
  Age: 57 Year
  Sex: Male
  Weight: 113.3993 kg

DRUGS (1)
  1. VIAGRA [Suspect]
     Dosage: AS REQUIRED, ORAL
     Route: 048

REACTIONS (5)
  - BLINDNESS TRANSIENT [None]
  - BLINDNESS UNILATERAL [None]
  - DIPLOPIA [None]
  - EYE HAEMORRHAGE [None]
  - VISION BLURRED [None]
